FAERS Safety Report 9601013 (Version 1)
Quarter: 2013Q4

REPORT INFORMATION
  Report Type: Spontaneous
  Country: US (occurrence: US)
  Receive Date: 20131004
  Receipt Date: 20131004
  Transmission Date: 20140711
  Serious: No
  Sender: FDA-Public Use
  Company Number: US-AMGEN-USASP2013038416

PATIENT
  Age: 59 Year
  Sex: Female
  Weight: 68.03 kg

DRUGS (7)
  1. ENBREL [Suspect]
     Indication: PRODUCT USED FOR UNKNOWN INDICATION
     Dosage: 50 MG, QWK
     Route: 058
  2. PREDNISONE [Concomitant]
     Dosage: 1 MG, UNK
  3. CODEINE [Concomitant]
     Dosage: 15-300 MG
  4. MULTIVITAMINS, PLAIN [Concomitant]
     Dosage: UNK
  5. FISH OIL [Concomitant]
     Dosage: UNK
  6. TYLENOL                            /00020001/ [Concomitant]
     Dosage: 8 HR 650 MG, UNK
  7. CELEBREX [Concomitant]
     Dosage: 100 MG, UNK

REACTIONS (1)
  - Drug ineffective [Unknown]
